FAERS Safety Report 9169438 (Version 1)
Quarter: 2013Q1

REPORT INFORMATION
  Report Type: Spontaneous
  Country: US (occurrence: US)
  Receive Date: 20130318
  Receipt Date: 20130318
  Transmission Date: 20140127
  Serious: No
  Sender: FDA-Public Use
  Company Number: US-BAYER-2013-032581

PATIENT
  Sex: Male

DRUGS (2)
  1. FINACEA [Suspect]
     Indication: ROSACEA
     Dosage: FINACEA (AZELAIC ACID) GEL 15%, APPLIES AFTER SHAVING DAILL
     Route: 061
  2. METROGEL [Concomitant]

REACTIONS (1)
  - Burning sensation [None]
